FAERS Safety Report 7562381-X (Version None)
Quarter: 2011Q2

REPORT INFORMATION
  Report Type: 
  Country: None (occurrence: None)
  Receive Date: 20110614
  Receipt Date: 20110601
  Transmission Date: 20111010
  Serious: Yes (Death, Other)
  Sender: FDA-Public Use
  Company Number: 2011MA006679

PATIENT
  Age: 69 Year
  Sex: Female

DRUGS (11)
  1. OXYCODONE HCL [Suspect]
     Dosage: 600 NG/ML;
  2. CULOXETINE [Concomitant]
  3. C-THYROXINE [Concomitant]
  4. SEROQUEL [Concomitant]
  5. LORAZEPAM [Concomitant]
  6. ACETAMINOPHEN [Concomitant]
  7. QUETIAPINE [Concomitant]
  8. BENICAR [Concomitant]
  9. CYMBALTA [Concomitant]
  10. BUPROPION HCL [Concomitant]
  11. DIPHENHYDRAMINE HCL [Concomitant]

REACTIONS (6)
  - PSYCHOTIC DISORDER [None]
  - LACERATION [None]
  - ACCIDENTAL DEATH [None]
  - INCORRECT DOSE ADMINISTERED [None]
  - HAEMORRHAGE [None]
  - TOXICITY TO VARIOUS AGENTS [None]
